FAERS Safety Report 11825587 (Version 9)
Quarter: 2018Q2

REPORT INFORMATION
  Report Type: Spontaneous
  Country: US (occurrence: US)
  Receive Date: 20151211
  Receipt Date: 20180507
  Transmission Date: 20180711
  Serious: Yes (Other)
  Sender: FDA-Public Use
  Company Number: US-JNJFOC-20150716884

PATIENT
  Age: 73 Year
  Sex: Female

DRUGS (22)
  1. PROTONIX [Concomitant]
     Active Substance: PANTOPRAZOLE SODIUM
  2. LORATADINE. [Concomitant]
     Active Substance: LORATADINE
  3. OXYCODONE [Concomitant]
     Active Substance: OXYCODONE
  4. IMBRUVICA [Suspect]
     Active Substance: IBRUTINIB
     Indication: CHRONIC LYMPHOCYTIC LEUKAEMIA
     Route: 048
     Dates: start: 201408
  5. IMBRUVICA [Suspect]
     Active Substance: IBRUTINIB
     Indication: CHRONIC LYMPHOCYTIC LEUKAEMIA
     Route: 048
     Dates: start: 20161102, end: 20180413
  6. ASPIRIN. [Concomitant]
     Active Substance: ASPIRIN
  7. PEPCID [Concomitant]
     Active Substance: FAMOTIDINE
  8. GABAPENTIN. [Concomitant]
     Active Substance: GABAPENTIN
  9. MELOXICAM. [Concomitant]
     Active Substance: MELOXICAM
  10. PANTOPRAZOLE SODIUM. [Concomitant]
     Active Substance: PANTOPRAZOLE SODIUM
  11. IMBRUVICA [Suspect]
     Active Substance: IBRUTINIB
     Indication: CHRONIC LYMPHOCYTIC LEUKAEMIA
     Route: 048
     Dates: start: 20140815
  12. IMBRUVICA [Suspect]
     Active Substance: IBRUTINIB
     Indication: CHRONIC LYMPHOCYTIC LEUKAEMIA
     Route: 048
     Dates: start: 20140820
  13. LISINOPRIL. [Concomitant]
     Active Substance: LISINOPRIL
  14. VITAMIN D [Concomitant]
     Active Substance: CHOLECALCIFEROL
  15. LYSINE [Concomitant]
     Active Substance: LYSINE
  16. MAGNESIUM [Concomitant]
     Active Substance: MAGNESIUM
  17. AMLODIPINE [Concomitant]
     Active Substance: AMLODIPINE BESYLATE
     Indication: HYPERTENSION
  18. PEPTO-BISMOL [Concomitant]
     Active Substance: BISMUTH SUBSALICYLATE
  19. ATENOLOL. [Concomitant]
     Active Substance: ATENOLOL
  20. TORADOL [Concomitant]
     Active Substance: KETOROLAC TROMETHAMINE
  21. VALTREX [Concomitant]
     Active Substance: VALACYCLOVIR HYDROCHLORIDE
  22. LYRICA [Concomitant]
     Active Substance: PREGABALIN

REACTIONS (25)
  - Nerve compression [Unknown]
  - Diarrhoea [Not Recovered/Not Resolved]
  - Myalgia [Unknown]
  - Hip arthroplasty [Recovered/Resolved]
  - Cardiac operation [Recovered/Resolved]
  - Sciatica [Not Recovered/Not Resolved]
  - Muscle strain [Unknown]
  - Haematochezia [Unknown]
  - Procedural pain [Unknown]
  - Paraesthesia [Unknown]
  - Pelvic pain [Not Recovered/Not Resolved]
  - Intervertebral disc protrusion [Unknown]
  - Pelvic deformity [Unknown]
  - Gastrooesophageal reflux disease [Not Recovered/Not Resolved]
  - Neuralgia [Unknown]
  - Procedural hypertension [Unknown]
  - Pain in extremity [Not Recovered/Not Resolved]
  - Nausea [Unknown]
  - Groin pain [Not Recovered/Not Resolved]
  - Gait disturbance [Not Recovered/Not Resolved]
  - Haemorrhoids [Unknown]
  - Dizziness [Unknown]
  - Nasopharyngitis [Unknown]
  - Cough [Unknown]
  - Muscle spasms [Unknown]

NARRATIVE: CASE EVENT DATE: 201502
